FAERS Safety Report 8764769 (Version 2)
Quarter: 2012Q4

REPORT INFORMATION
  Report Type: 
  Country: JP (occurrence: JP)
  Receive Date: 20120831
  Receipt Date: 20120921
  Transmission Date: 20130627
  Serious: Yes (Hospitalization, Other)
  Sender: FDA-Public Use
  Company Number: JP-ROCHE-1049184

PATIENT
  Age: 67 Year
  Sex: Male
  Weight: 52 kg

DRUGS (5)
  1. HERCEPTIN [Suspect]
     Indication: METASTATIC GASTRIC CANCER
     Route: 041
     Dates: start: 20111115, end: 20111115
  2. HERCEPTIN [Suspect]
     Indication: METASTATIC GASTRIC CANCER
     Route: 041
     Dates: start: 20111219, end: 20120131
  3. PACLITAXEL [Suspect]
     Indication: METASTATIC GASTRIC CANCER
     Route: 041
     Dates: start: 20120123, end: 20120131
  4. XELODA [Concomitant]
     Indication: METASTATIC GASTRIC CANCER
     Route: 048
     Dates: start: 20111115, end: 20111219
  5. CISPLATIN [Concomitant]
     Indication: METASTATIC GASTRIC CANCER
     Route: 041
     Dates: start: 20111115, end: 20111219

REACTIONS (3)
  - Interstitial lung disease [Recovered/Resolved]
  - Pleural effusion [Unknown]
  - Pericardial effusion [Unknown]
